FAERS Safety Report 6225768-3 (Version None)
Quarter: 2009Q2

REPORT INFORMATION
  Report Type: 
  Country: None (occurrence: None)
  Receive Date: 20090612
  Receipt Date: 20090422
  Transmission Date: 20091009
  Serious: No
  Sender: FDA-Public Use
  Company Number: US-ABBOTT-09P-163-0569801-00

PATIENT
  Sex: Female
  Weight: 90.8 kg

DRUGS (3)
  1. HUMIRA [Suspect]
     Indication: PSORIATIC ARTHROPATHY
     Dates: start: 20080101, end: 20080101
  2. RESTASIS [Concomitant]
     Indication: KERATOCONJUNCTIVITIS SICCA
  3. ALEVE [Concomitant]
     Indication: PSORIATIC ARTHROPATHY
     Dosage: PRN FOR PAIN

REACTIONS (1)
  - DRUG INEFFECTIVE [None]
